FAERS Safety Report 4704335-4 (Version None)
Quarter: 2005Q2

REPORT INFORMATION
  Report Type: 
  Country: None (occurrence: None)
  Receive Date: 20050630
  Receipt Date: 20041021
  Transmission Date: 20051028
  Serious: Yes (Death, Other)
  Sender: FDA-Public Use
  Company Number: PHEH2004US11360

PATIENT
  Age: 73 Year
  Sex: Female
  Weight: 51 kg

DRUGS (11)
  1. ZOMETA [Suspect]
     Indication: HYPERCALCAEMIA
     Dosage: 4 MG EVERY 4 WEEKS
     Route: 042
     Dates: start: 20020101, end: 20040401
  2. NEXIUM [Concomitant]
  3. PREMARIN [Concomitant]
  4. CPT-11 [Concomitant]
  5. CARBOPLATIN [Concomitant]
  6. TAXOTERE [Concomitant]
  7. GEMCITABINE [Concomitant]
     Dates: start: 20011201, end: 20020124
  8. TOPOTECAN [Concomitant]
     Dates: start: 20030101, end: 20030301
  9. TAXOL + CARBOPLATIN [Concomitant]
     Dates: start: 20020201, end: 20020501
  10. CAMPTOSAR [Concomitant]
     Dates: start: 20020601, end: 20021201
  11. ETOPOSIDE [Concomitant]
     Indication: HYPERCALCAEMIA
     Dosage: 50MG QOD
     Route: 048
     Dates: start: 20031001, end: 20040501

REACTIONS (5)
  - JAW DISORDER [None]
  - OSTEOMYELITIS [None]
  - OSTEONECROSIS [None]
  - WOUND [None]
  - WOUND DEBRIDEMENT [None]
